FAERS Safety Report 5092958-5 (Version None)
Quarter: 2006Q3

REPORT INFORMATION
  Report Type: 
  Country: None (occurrence: None)
  Receive Date: 20060830
  Receipt Date: 20060821
  Transmission Date: 20061208
  Serious: Yes (Hospitalization)
  Sender: FDA-Public Use
  Company Number: IT-BRISTOL-MYERS SQUIBB COMPANY-13483698

PATIENT
  Sex: Male

DRUGS (1)
  1. CARBOPLATIN [Suspect]

REACTIONS (2)
  - NEPHRITIS [None]
  - PYREXIA [None]
